FAERS Safety Report 6825611-5 (Version None)
Quarter: 2010Q3

REPORT INFORMATION
  Report Type: 
  Country: None (occurrence: None)
  Receive Date: 20100708
  Receipt Date: 20070320
  Transmission Date: 20110219
  Serious: No
  Sender: FDA-Public Use
  Company Number: US-PFIZER INC-2006154515

PATIENT
  Sex: Male
  Weight: 77.11 kg

DRUGS (6)
  1. CHANTIX [Suspect]
     Indication: SMOKING CESSATION THERAPY
     Dates: start: 20061001
  2. CHANTIX [Suspect]
     Indication: NICOTINE DEPENDENCE
  3. EFFEXOR [Concomitant]
  4. ADDERALL 10 [Concomitant]
  5. HYDROCHLOROTHIAZIDE [Concomitant]
     Indication: HYPERTENSION
  6. LORAZEPAM [Concomitant]

REACTIONS (3)
  - ABNORMAL DREAMS [None]
  - HIGH DENSITY LIPOPROTEIN DECREASED [None]
  - LOW DENSITY LIPOPROTEIN INCREASED [None]
